FAERS Safety Report 17921323 (Version 1)
Quarter: 2020Q2

REPORT INFORMATION
  Report Type: Spontaneous
  Country: US (occurrence: US)
  Receive Date: 20200622
  Receipt Date: 20200622
  Transmission Date: 20200714
  Serious: No
  Sender: FDA-Public Use
  Company Number: US-009507513-2006USA005055

PATIENT
  Age: 47 Year
  Sex: Male

DRUGS (8)
  1. LEUCOVORIN. [Concomitant]
     Active Substance: LEUCOVORIN
     Indication: CARCINOID TUMOUR OF THE PANCREAS
  2. FLUOROURACIL. [Concomitant]
     Active Substance: FLUOROURACIL
     Indication: BILE DUCT CANCER STAGE IV
     Dosage: 2400 MG/M2
     Dates: start: 20171004, end: 201811
  3. FLUOROURACIL. [Concomitant]
     Active Substance: FLUOROURACIL
     Indication: CARCINOID TUMOUR OF THE PANCREAS
  4. KEYTRUDA [Suspect]
     Active Substance: PEMBROLIZUMAB
     Indication: CARCINOID TUMOUR OF THE PANCREAS
  5. LEUCOVORIN. [Concomitant]
     Active Substance: LEUCOVORIN
     Indication: BILE DUCT CANCER STAGE IV
     Dosage: 400 MILLIGRAM/SQ. METER
     Dates: start: 20171004, end: 201811
  6. KEYTRUDA [Suspect]
     Active Substance: PEMBROLIZUMAB
     Indication: BILE DUCT CANCER STAGE IV
     Dosage: 200 MILLIGRAM, CYCLICAL
     Dates: start: 201811, end: 201902
  7. IRINOTECAN HYDROCHLORIDE. [Concomitant]
     Active Substance: IRINOTECAN HYDROCHLORIDE
     Indication: CARCINOID TUMOUR OF THE PANCREAS
  8. IRINOTECAN HYDROCHLORIDE. [Concomitant]
     Active Substance: IRINOTECAN HYDROCHLORIDE
     Indication: BILE DUCT CANCER STAGE IV
     Dosage: 70 MILLIGRAM/SQ. METER
     Dates: start: 20171004, end: 201811

REACTIONS (1)
  - Product use in unapproved indication [Unknown]

NARRATIVE: CASE EVENT DATE: 201811
